FAERS Safety Report 16886262 (Version 1)
Quarter: 2019Q4

REPORT INFORMATION
  Report Type: Spontaneous
  Country: US (occurrence: US)
  Receive Date: 20191004
  Receipt Date: 20191004
  Transmission Date: 20200122
  Serious: Yes (Hospitalization)
  Sender: FDA-Public Use
  Company Number: None

PATIENT
  Sex: Female

DRUGS (20)
  1. HYDROCHLOROT [Concomitant]
     Active Substance: HYDROCHLOROTHIAZIDE
  2. KONSYL [Concomitant]
     Active Substance: PSYLLIUM HUSK
  3. MIRALAX [Concomitant]
     Active Substance: POLYETHYLENE GLYCOL 3350
  4. TRAMADOL. [Concomitant]
     Active Substance: TRAMADOL
  5. VITAMIN D3 [Concomitant]
     Active Substance: CHOLECALCIFEROL
  6. CELEBREX [Concomitant]
     Active Substance: CELECOXIB
  7. PRAVASTATIN. [Concomitant]
     Active Substance: PRAVASTATIN
  8. SYNTHROID [Concomitant]
     Active Substance: LEVOTHYROXINE SODIUM
  9. TOPROL XL [Concomitant]
     Active Substance: METOPROLOL SUCCINATE
  10. MAGNESIUM [Concomitant]
     Active Substance: MAGNESIUM
  11. TART CHERRY [Concomitant]
  12. TEMAZEPAM. [Concomitant]
     Active Substance: TEMAZEPAM
  13. DIGESTIVE [Concomitant]
  14. RANITIDINE. [Concomitant]
     Active Substance: RANITIDINE
  15. RESTASIS [Concomitant]
     Active Substance: CYCLOSPORINE
  16. XIIDRA [Concomitant]
     Active Substance: LIFITEGRAST
  17. ENBREL [Suspect]
     Active Substance: ETANERCEPT
     Indication: PSORIATIC ARTHROPATHY
     Dosage: ?          OTHER FREQUENCY:QOW;?
     Route: 058
     Dates: start: 20190108
  18. CYCLOBENZAPRINE. [Concomitant]
     Active Substance: CYCLOBENZAPRINE
  19. DULOXETINE. [Concomitant]
     Active Substance: DULOXETINE
  20. WALZYR [Concomitant]

REACTIONS (3)
  - Shoulder arthroplasty [None]
  - Condition aggravated [None]
  - Therapy cessation [None]
